FAERS Safety Report 16701349 (Version 2)
Quarter: 2019Q3

REPORT INFORMATION
  Report Type: Spontaneous
  Country: DE (occurrence: DE)
  Receive Date: 20190814
  Receipt Date: 20190830
  Transmission Date: 20191004
  Serious: Yes (Hospitalization)
  Sender: FDA-Public Use
  Company Number: DE-AUROBINDO-AUR-APL-2019-053764

PATIENT

DRUGS (1)
  1. MOXIFLOXACIN PUREN 400MG, FILM-COATED TABLETS [Suspect]
     Active Substance: MOXIFLOXACIN
     Indication: BRONCHITIS
     Dosage: 400 MILLIGRAM, SINGLE INTAKE
     Route: 048
     Dates: start: 20190805, end: 20190805

REACTIONS (2)
  - Paraesthesia [Recovered/Resolved]
  - Speech disorder [Recovered/Resolved]

NARRATIVE: CASE EVENT DATE: 20190805
